FAERS Safety Report 5267704-2 (Version None)
Quarter: 2007Q1

REPORT INFORMATION
  Report Type: 
  Country: None (occurrence: None)
  Receive Date: 20070316
  Receipt Date: 20070307
  Transmission Date: 20070707
  Serious: Yes (Life-Threatening, Hospitalization)
  Sender: FDA-Public Use
  Company Number: DE-PFIZER INC-2006156196

PATIENT
  Sex: Female

DRUGS (4)
  1. AZULFIDINE [Suspect]
     Indication: SPONDYLOARTHROPATHY
     Route: 048
     Dates: start: 20051201, end: 20060710
  2. NAPROXEN [Suspect]
     Indication: SPONDYLOARTHROPATHY
     Route: 048
  3. CARBAMAZEPINE [Suspect]
     Indication: EPILEPSY
     Route: 048
  4. LEVETIRACETAM [Suspect]
     Indication: EPILEPSY
     Route: 048
     Dates: start: 20040101, end: 20060701

REACTIONS (2)
  - APLASTIC ANAEMIA [None]
  - PANCYTOPENIA [None]
